FAERS Safety Report 22316308 (Version 2)
Quarter: 2023Q2

REPORT INFORMATION
  Report Type: Report from Study
  Country: US (occurrence: US)
  Receive Date: 20230513
  Receipt Date: 20230519
  Transmission Date: 20230722
  Serious: No
  Sender: FDA-Public Use
  Company Number: US-002147023-NVSC2023US109413

PATIENT
  Sex: Female
  Weight: 85.73 kg

DRUGS (2)
  1. METFORMIN [Suspect]
     Active Substance: METFORMIN HYDROCHLORIDE
     Indication: Product used for unknown indication
     Dosage: UNK
     Route: 065
  2. DOXYCYCLINE [Suspect]
     Active Substance: DOXYCYCLINE
     Indication: Product used for unknown indication
     Dosage: UNK
     Route: 065

REACTIONS (7)
  - Hidradenitis [Unknown]
  - Rash erythematous [Unknown]
  - Swelling [Unknown]
  - Tenderness [Unknown]
  - Dermatitis acneiform [Unknown]
  - Nodular fasciitis [Unknown]
  - Drug ineffective [Unknown]
